FAERS Safety Report 25839284 (Version 1)
Quarter: 2025Q3

REPORT INFORMATION
  Report Type: Spontaneous
  Country: JP (occurrence: None)
  Receive Date: 20250924
  Receipt Date: 20250924
  Transmission Date: 20251021
  Serious: Yes (Life-Threatening, Hospitalization)
  Sender: ACS DOBFAR
  Company Number: JP-MLMSERVICE-20250911-PI636878-00029-2

PATIENT
  Age: 75 Year
  Sex: Male

DRUGS (5)
  1. ACETAMINOPHEN [Suspect]
     Active Substance: ACETAMINOPHEN
  2. FAMOTIDINE [Suspect]
     Active Substance: FAMOTIDINE
  3. RAMELTEON [Suspect]
     Active Substance: RAMELTEON
  4. CEFAZOLIN [Suspect]
     Active Substance: CEFAZOLIN
     Indication: Mycobacterial infection
  5. PIPERACILLIN SODIUM\TAZOBACTAM SODIUM [Concomitant]
     Active Substance: PIPERACILLIN SODIUM\TAZOBACTAM SODIUM
     Indication: Evidence based treatment

REACTIONS (1)
  - Toxic epidermal necrolysis [Recovering/Resolving]
